FAERS Safety Report 18568020 (Version 1)
Quarter: 2020Q4

REPORT INFORMATION
  Report Type: Report from Study
  Country: US (occurrence: US)
  Receive Date: 20201202
  Receipt Date: 20201202
  Transmission Date: 20210114
  Serious: Yes (Hospitalization, Other)
  Sender: FDA-Public Use
  Company Number: US-AUROBINDO-AUR-APL-2020-058832

PATIENT
  Sex: Male

DRUGS (2)
  1. HYDROXYCHLOROQUINE [Suspect]
     Active Substance: HYDROXYCHLOROQUINE
     Indication: COVID-19
     Dosage: 500 MILLIGRAM, DAILY (FOLLOWED BY 250 MG DAILY  FOR THE NEXT 4 DAYS)
     Route: 048
  2. AZITHROMYCIN ANHYDROUS. [Suspect]
     Active Substance: AZITHROMYCIN ANHYDROUS
     Indication: COVID-19
     Dosage: 400 MILLIGRAM, TWO TIMES A DAY (FOLLOWED BY 200MG TWICE DAILY FOR 4 DAYS ))
     Route: 048

REACTIONS (2)
  - Torsade de pointes [Unknown]
  - Off label use [Unknown]
